FAERS Safety Report 5795453-0 (Version None)
Quarter: 2008Q2

REPORT INFORMATION
  Report Type: 
  Country: None (occurrence: None)
  Receive Date: 20080630
  Receipt Date: 20080623
  Transmission Date: 20081010
  Serious: Yes (Death, Hospitalization, Other)
  Sender: FDA-Public Use
  Company Number: US-PFIZER INC-2008037581

PATIENT
  Sex: Female
  Weight: 49.9 kg

DRUGS (3)
  1. BEXTRA [Suspect]
     Indication: ANALGESIA
     Route: 048
  2. BEXTRA [Suspect]
     Indication: ARTHRITIS
  3. CELEBREX [Suspect]

REACTIONS (1)
  - MYOCARDIAL INFARCTION [None]
